FAERS Safety Report 4854338-4 (Version None)
Quarter: 2005Q4

REPORT INFORMATION
  Report Type: 
  Country: None (occurrence: None)
  Receive Date: 20051213
  Receipt Date: 20051213
  Transmission Date: 20060501
  Serious: Yes (Hospitalization)
  Sender: FDA-Public Use
  Company Number: None

PATIENT
  Age: 56 Year
  Sex: Male
  Weight: 66.6788 kg

DRUGS (1)
  1. WARFARIN  10MG [Suspect]
     Indication: AORTIC THROMBOSIS
     Dosage: 10MG  DAILY PO
     Route: 048
     Dates: start: 20051101, end: 20051212

REACTIONS (1)
  - DRUG TOXICITY [None]
